FAERS Safety Report 6503071-1 (Version None)
Quarter: 2009Q4

REPORT INFORMATION
  Report Type: 
  Country: None (occurrence: None)
  Receive Date: 20091217
  Receipt Date: 20091207
  Transmission Date: 20100525
  Serious: No
  Sender: FDA-Public Use
  Company Number: FR-ROCHE-674451

PATIENT
  Age: 11 Year
  Sex: Male

DRUGS (3)
  1. TAMIFLU [Suspect]
     Indication: DRUG USE FOR UNKNOWN INDICATION
     Dosage: OVERDOSE
     Route: 065
  2. TAMIFLU [Suspect]
     Route: 065
  3. AMOXICILLIN [Concomitant]

REACTIONS (2)
  - OVERDOSE [None]
  - VOMITING [None]
